FAERS Safety Report 8169481-4 (Version None)
Quarter: 2012Q1

REPORT INFORMATION
  Report Type: 
  Country: None (occurrence: None)
  Receive Date: 20120228
  Receipt Date: 20120215
  Transmission Date: 20120608
  Serious: Yes (Life-Threatening, Other)
  Sender: FDA-Public Use
  Company Number: IT-ACCORD-012442

PATIENT
  Sex: Female

DRUGS (5)
  1. NAVOBAN [Concomitant]
  2. TRIMETON [Concomitant]
  3. ZANTAC [Concomitant]
  4. DEXAMETHASONE SODIUM PHOSPHATE [Concomitant]
     Dosage: STRENGHT: 8MG/2ML
  5. PACLITAXEL [Suspect]
     Indication: BREAST CANCER
     Dosage: DAILY
     Route: 042
     Dates: start: 20120127, end: 20120127

REACTIONS (5)
  - LOSS OF CONSCIOUSNESS [None]
  - NAUSEA [None]
  - HYPERTENSION [None]
  - ASPHYXIA [None]
  - RASH [None]
